FAERS Safety Report 4875251-2 (Version None)
Quarter: 2006Q1

REPORT INFORMATION
  Report Type: 
  Country: None (occurrence: None)
  Receive Date: 20060109
  Receipt Date: 20051003
  Transmission Date: 20060701
  Serious: Yes (Hospitalization, Other)
  Sender: FDA-Public Use
  Company Number: US-MERCK-0510USA02605

PATIENT
  Age: 69 Year
  Sex: Male
  Weight: 82 kg

DRUGS (2)
  1. VIOXX [Suspect]
     Indication: ARTHRITIS
     Route: 048
     Dates: start: 20010301, end: 20020901
  2. TYLENOL [Concomitant]
     Route: 065

REACTIONS (6)
  - CARDIAC DISORDER [None]
  - CHEST PAIN [None]
  - CORONARY ARTERY RESTENOSIS [None]
  - ISCHAEMIC STROKE [None]
  - MYOCARDIAL INFARCTION [None]
  - TRANSIENT ISCHAEMIC ATTACK [None]
